FAERS Safety Report 7291362-9 (Version None)
Quarter: 2011Q1

REPORT INFORMATION
  Report Type: 
  Country: None (occurrence: None)
  Receive Date: 20110214
  Receipt Date: 20110209
  Transmission Date: 20110831
  Serious: Yes (Hospitalization)
  Sender: FDA-Public Use
  Company Number: A0913209A

PATIENT
  Age: 55 Year
  Sex: Female

DRUGS (2)
  1. XELODA [Suspect]
  2. TYKERB [Suspect]
     Indication: BREAST CANCER
     Dosage: 5TAB PER DAY
     Route: 048

REACTIONS (2)
  - DIARRHOEA [None]
  - HYPOKALAEMIA [None]
